FAERS Safety Report 6143523-X (Version None)
Quarter: 2009Q2

REPORT INFORMATION
  Report Type: 
  Country: None (occurrence: None)
  Receive Date: 20090403
  Receipt Date: 20090331
  Transmission Date: 20091009
  Serious: Yes (Hospitalization)
  Sender: FDA-Public Use
  Company Number: JP-EISAI MEDICAL RESEARCH-E2090-00680-SPO-JP

PATIENT
  Sex: Male

DRUGS (4)
  1. EXCEGRAN [Suspect]
     Indication: DRUG USE FOR UNKNOWN INDICATION
     Route: 048
     Dates: start: 20090204, end: 20090214
  2. ALOTEC [Concomitant]
     Route: 048
     Dates: start: 20080917
  3. THYRADIN [Concomitant]
     Route: 048
     Dates: start: 20080917
  4. TAMIFLU [Concomitant]
     Indication: INFLUENZA
     Route: 048
     Dates: start: 20090210, end: 20090214

REACTIONS (1)
  - STEVENS-JOHNSON SYNDROME [None]
